FAERS Safety Report 15660594 (Version 3)
Quarter: 2019Q2

REPORT INFORMATION
  Report Type: Spontaneous
  Country: JP (occurrence: JP)
  Receive Date: 20181127
  Receipt Date: 20190425
  Transmission Date: 20190711
  Serious: Yes (Hospitalization, Other)
  Sender: FDA-Public Use
  Company Number: JP-AMGEN-JPNSP2018168110

PATIENT
  Age: 72 Year
  Sex: Male
  Weight: 68.9 kg

DRUGS (15)
  1. CALFINA [Concomitant]
     Active Substance: ALFACALCIDOL
     Dosage: 0.25 MICROGRAM, QD (0.25 UG, EVERYDAY)
     Route: 048
     Dates: start: 20180608
  2. CARVEDILOL. [Concomitant]
     Active Substance: CARVEDILOL
     Dosage: UNK
     Route: 048
  3. FOSRENOL [Concomitant]
     Active Substance: LANTHANUM CARBONATE
     Dosage: 750 MG, QD (750 MG, EVERYDAY)
     Route: 048
  4. INSULIN [Concomitant]
     Active Substance: INSULIN NOS
     Indication: DIABETES MELLITUS
     Dosage: DOSE UNSPECIFIED
     Route: 065
     Dates: start: 20180914
  5. MIRCERA [Concomitant]
     Active Substance: METHOXY POLYETHYLENE GLYCOL-EPOETIN BETA
     Dosage: 100 MICROGRAM, Q4WK (100 UG, Q4W)
     Route: 042
     Dates: end: 20180907
  6. MIRCERA [Concomitant]
     Active Substance: METHOXY POLYETHYLENE GLYCOL-EPOETIN BETA
     Dosage: 150 MICROGRAM, Q4WK (150 UG, Q4W)
     Route: 042
     Dates: start: 20180910, end: 20181001
  7. MIRCERA [Concomitant]
     Active Substance: METHOXY POLYETHYLENE GLYCOL-EPOETIN BETA
     Dosage: 25 MICROGRAM, Q4WK (25 UG, Q4W)
     Route: 042
     Dates: start: 20190125
  8. DOMPERIDONE [Concomitant]
     Active Substance: DOMPERIDONE
     Dosage: UNK
     Route: 048
  9. FOSRENOL OD [Concomitant]
     Dosage: 750 MILLIGRAM, QD
     Route: 048
  10. PARSABIV [Suspect]
     Active Substance: ETELCALCETIDE HYDROCHLORIDE
     Indication: HYPERPARATHYROIDISM SECONDARY
     Dosage: 2.5 MG, 3 TIMES/WK
     Route: 010
     Dates: start: 20180820
  11. MIRCERA [Concomitant]
     Active Substance: METHOXY POLYETHYLENE GLYCOL-EPOETIN BETA
     Dosage: 50 MICROGRAM, Q4WK (50 UG, Q4W)
     Route: 042
     Dates: start: 20181123, end: 20190118
  12. INSULIN [Concomitant]
     Active Substance: INSULIN NOS
     Dosage: DOSE UNSPECIFIED
     Route: 065
     Dates: start: 20181029
  13. P-TOL [SUCROFERRIC OXYHYDROXIDE] [Concomitant]
     Dosage: 2250 MILLIGRAM, QD (2250 MG, EVERYDAY)
     Route: 048
  14. MIRCERA [Concomitant]
     Active Substance: METHOXY POLYETHYLENE GLYCOL-EPOETIN BETA
     Dosage: 100 MICROGRAM, Q4WK (100 UG, Q4W)
     Route: 042
     Dates: start: 20181015, end: 20181116
  15. CLOPIDOGREL [Concomitant]
     Active Substance: CLOPIDOGREL BISULFATE
     Dosage: UNK
     Route: 048

REACTIONS (4)
  - Shock [Recovering/Resolving]
  - Shunt stenosis [Not Recovered/Not Resolved]
  - Skin ulcer [Recovered/Resolved]
  - Vitreous haemorrhage [Recovering/Resolving]

NARRATIVE: CASE EVENT DATE: 20180903
